FAERS Safety Report 8017383-6 (Version None)
Quarter: 2012Q1

REPORT INFORMATION
  Report Type: 
  Country: None (occurrence: None)
  Receive Date: 20120102
  Receipt Date: 20111209
  Transmission Date: 20120608
  Serious: No
  Sender: FDA-Public Use
  Company Number: US-ROXANE LABORATORIES, INC.-2011-RO-01674RO

PATIENT
  Age: 53 Year
  Sex: Female

DRUGS (2)
  1. FLUTICASONE FUROATE [Suspect]
     Indication: SEASONAL ALLERGY
     Route: 055
     Dates: start: 20111122, end: 20111122
  2. QVAR 40 [Concomitant]
     Indication: ASTHMA
     Route: 055

REACTIONS (3)
  - PRODUCT ODOUR ABNORMAL [None]
  - NASAL INFLAMMATION [None]
  - UPPER-AIRWAY COUGH SYNDROME [None]
